FAERS Safety Report 8262357-3 (Version None)
Quarter: 2012Q2

REPORT INFORMATION
  Report Type: 
  Country: None (occurrence: None)
  Receive Date: 20120405
  Receipt Date: 20110128
  Transmission Date: 20120825
  Serious: Yes (Hospitalization)
  Sender: FDA-Public Use
  Company Number: HU-ROCHE-756670

PATIENT
  Sex: Male
  Weight: 83 kg

DRUGS (5)
  1. METOCLOPRAMIDE [Concomitant]
     Dates: start: 20110124, end: 20110124
  2. ALPRAZOLAM [Concomitant]
     Dates: start: 20110124, end: 20110124
  3. TAMIFLU [Suspect]
     Indication: INFLUENZA
     Dosage: DOSE BLINDED, FORM: INFUSION
     Route: 042
     Dates: start: 20110125, end: 20110127
  4. CLARITHROMYCIN [Suspect]
     Indication: PRODUCT USED FOR UNKNOWN INDICATION
     Dates: start: 20110124, end: 20110127
  5. SODIUM CHLORIDE [Concomitant]
     Dosage: DRUG: PHYSIOLOGIC (0.9 %) NACL INFUSION
     Route: 055
     Dates: start: 20110124, end: 20110130

REACTIONS (1)
  - SINUS BRADYCARDIA [None]
